FAERS Safety Report 13295229 (Version 2)
Quarter: 2017Q1

REPORT INFORMATION
  Report Type: Spontaneous
  Country: US (occurrence: US)
  Receive Date: 20170303
  Receipt Date: 20170329
  Transmission Date: 20170428
  Serious: Yes (Hospitalization, Other)
  Sender: FDA-Public Use
  Company Number: US-JNJFOC-20161214870

PATIENT
  Age: 78 Year
  Sex: Female

DRUGS (6)
  1. XARELTO [Suspect]
     Active Substance: RIVAROXABAN
     Indication: CEREBROVASCULAR ACCIDENT PROPHYLAXIS
     Dosage: IN VARYING DOSES OF 15 MG TO 20 MG
     Route: 048
     Dates: start: 20150520, end: 20150630
  2. XARELTO [Suspect]
     Active Substance: RIVAROXABAN
     Indication: DEEP VEIN THROMBOSIS
     Dosage: IN VARYING DOSES OF 15 MG TO 20 MG
     Route: 048
     Dates: start: 20150520, end: 20150630
  3. XARELTO [Suspect]
     Active Substance: RIVAROXABAN
     Indication: ATRIAL FIBRILLATION
     Dosage: IN VARYING DOSES OF 15 MG TO 20 MG
     Route: 048
     Dates: start: 2015, end: 20150710
  4. XARELTO [Suspect]
     Active Substance: RIVAROXABAN
     Indication: DEEP VEIN THROMBOSIS
     Dosage: IN VARYING DOSES OF 15 MG TO 20 MG
     Route: 048
     Dates: start: 2015, end: 20150710
  5. XARELTO [Suspect]
     Active Substance: RIVAROXABAN
     Indication: ATRIAL FIBRILLATION
     Dosage: IN VARYING DOSES OF 15 MG TO 20 MG
     Route: 048
     Dates: start: 20150520, end: 20150630
  6. XARELTO [Suspect]
     Active Substance: RIVAROXABAN
     Indication: CEREBROVASCULAR ACCIDENT PROPHYLAXIS
     Dosage: IN VARYING DOSES OF 15 MG TO 20 MG
     Route: 048
     Dates: start: 2015, end: 20150710

REACTIONS (4)
  - Small intestinal haemorrhage [Unknown]
  - Acute kidney injury [Recovering/Resolving]
  - Shock [Recovered/Resolved]
  - Gastrointestinal haemorrhage [Recovered/Resolved]

NARRATIVE: CASE EVENT DATE: 20150529
